FAERS Safety Report 5171476-X (Version None)
Quarter: 2006Q4

REPORT INFORMATION
  Report Type: 
  Country: None (occurrence: None)
  Receive Date: 20061213
  Receipt Date: 20060510
  Transmission Date: 20070319
  Serious: Yes (Hospitalization)
  Sender: FDA-Public Use
  Company Number: US-AMGEN-STX179292

PATIENT
  Sex: Male

DRUGS (4)
  1. ENBREL [Suspect]
     Indication: PSORIASIS
     Route: 058
     Dates: start: 20060302, end: 20060501
  2. ENBREL [Suspect]
     Indication: PSORIATIC ARTHROPATHY
  3. TRIAMCINOLONE [Concomitant]
     Route: 061
  4. DERMA-SMOOTHE [Concomitant]
     Route: 061

REACTIONS (1)
  - CONVULSION [None]
